FAERS Safety Report 24927728 (Version 1)
Quarter: 2025Q1

REPORT INFORMATION
  Report Type: Other
  Country: CA (occurrence: CA)
  Receive Date: 20250205
  Receipt Date: 20250205
  Transmission Date: 20250409
  Serious: Yes (Hospitalization)
  Sender: ALVOGEN
  Company Number: CA-ALVOGEN-2025096208

PATIENT
  Age: 55 Year
  Sex: Male

DRUGS (6)
  1. FENTANYL [Suspect]
     Active Substance: FENTANYL
     Indication: Product used for unknown indication
  2. AMPHETAMINE [Concomitant]
     Active Substance: AMPHETAMINE
     Indication: Product used for unknown indication
  3. HYDROMORPHONE [Concomitant]
     Active Substance: HYDROMORPHONE
     Indication: Product used for unknown indication
     Route: 048
  4. HYDROMORPHONE [Concomitant]
     Active Substance: HYDROMORPHONE
     Indication: Product used for unknown indication
  5. METHADONE [Concomitant]
     Active Substance: METHADONE HYDROCHLORIDE
     Indication: Product used for unknown indication
  6. METHADONE [Concomitant]
     Active Substance: METHADONE HYDROCHLORIDE
     Indication: Product used for unknown indication

REACTIONS (9)
  - Cerebral venous sinus thrombosis [Unknown]
  - Altered state of consciousness [Unknown]
  - Mental status changes [Unknown]
  - Anaemia [Unknown]
  - Hemiparesis [Unknown]
  - Withdrawal syndrome [Recovering/Resolving]
  - Overdose [Unknown]
  - Treatment noncompliance [Unknown]
  - Incorrect route of product administration [Unknown]
